FAERS Safety Report 9741550 (Version 2)
Quarter: 2013Q4

REPORT INFORMATION
  Report Type: Spontaneous
  Country: FR (occurrence: FR)
  Receive Date: 20131210
  Receipt Date: 20131213
  Transmission Date: 20140711
  Serious: Yes (Other)
  Sender: FDA-Public Use
  Company Number: PHHY2013FR142390

PATIENT
  Sex: Female

DRUGS (2)
  1. ECONAZOLE SANDOZ [Suspect]
     Indication: VULVOVAGINAL CANDIDIASIS
     Dosage: 150 MG, ONCE/SINGLE
     Route: 067
     Dates: start: 20110302, end: 20110302
  2. MONAZOL [Suspect]
     Indication: PRODUCT USED FOR UNKNOWN INDICATION
     Dosage: 2 %, ONCE/SINGLE
     Route: 061
     Dates: start: 20110302, end: 20110302

REACTIONS (3)
  - Oedema [Recovered/Resolved]
  - Erythema [Recovered/Resolved]
  - Pruritus [Recovered/Resolved]
